FAERS Safety Report 4639064-9 (Version None)
Quarter: 2005Q2

REPORT INFORMATION
  Report Type: 
  Country: None (occurrence: None)
  Receive Date: 20050418
  Receipt Date: 20050404
  Transmission Date: 20051028
  Serious: Yes (Other)
  Sender: FDA-Public Use
  Company Number: HQWYE653304APR05

PATIENT
  Age: 63 Year
  Sex: Male

DRUGS (5)
  1. VENLAFAXINE HCL [Suspect]
     Indication: DEPRESSION
     Dosage: 150 MG 1X PER 1 DAY; ORAL
     Route: 048
     Dates: start: 20040301, end: 20040301
  2. TRIMETAZIDINE [Concomitant]
  3. TANAKAN (GINKGO TREE LEAVES EXTRACT) [Concomitant]
  4. TRIMEBUTINE [Concomitant]
  5. ALFUZOSIN [Concomitant]

REACTIONS (1)
  - DUODENAL ULCER [None]
